FAERS Safety Report 5675975-3 (Version None)
Quarter: 2008Q1

REPORT INFORMATION
  Report Type: 
  Country: None (occurrence: None)
  Receive Date: 20080318
  Receipt Date: 20080305
  Transmission Date: 20080703
  Serious: Yes (Other)
  Sender: FDA-Public Use
  Company Number: 08H-163-0313970-00

PATIENT
  Age: 53 Year
  Sex: Female

DRUGS (7)
  1. FENTANYL CITRATE [Suspect]
     Indication: INDUCTION OF ANAESTHESIA
     Dosage: NOT REPORTED, NOT REPORTED
  2. ATENOLOL [Suspect]
     Indication: HYPERTENSION
     Dosage: NOT REPORTED, NOT REPORTED, NOT REPORTED
  3. OXYGEN (OXYGEN) [Concomitant]
  4. MIDAZOLAM HCL [Concomitant]
  5. LIDOCAINE [Concomitant]
  6. ETOMIDATE [Concomitant]
  7. SUCCINYLCHOLINE CHLORIDE [Concomitant]

REACTIONS (3)
  - BRADYCARDIA [None]
  - CARDIAC ARREST [None]
  - DRUG INTERACTION [None]
